FAERS Safety Report 5064945-4 (Version None)
Quarter: 2006Q3

REPORT INFORMATION
  Report Type: 
  Country: None (occurrence: None)
  Receive Date: 20060727
  Receipt Date: 20060727
  Transmission Date: 20061208
  Serious: Yes (Other)
  Sender: FDA-Public Use
  Company Number: None

PATIENT
  Age: 85 Year
  Sex: Male
  Weight: 68.7199 kg

DRUGS (1)
  1. EZETIMIBE/SIMVASTATIN   10MG/80MG   MERCK/SCHERING-PLOUGH [Suspect]
     Indication: HYPERLIPIDAEMIA
     Dosage: 1 TABLET  DAILY  PO
     Route: 048

REACTIONS (2)
  - MUSCULOSKELETAL STIFFNESS [None]
  - PARAESTHESIA [None]
